FAERS Safety Report 9029589 (Version 2)
Quarter: 2013Q1

REPORT INFORMATION
  Report Type: Spontaneous
  Country: CA (occurrence: CA)
  Receive Date: 20130125
  Receipt Date: 20130314
  Transmission Date: 20140127
  Serious: Yes (Hospitalization)
  Sender: FDA-Public Use
  Company Number: CA-AMGEN-CANSP2013000628

PATIENT
  Age: 53 Year
  Sex: Female
  Weight: 58 kg

DRUGS (4)
  1. NPLATE [Suspect]
     Indication: THROMBOCYTOPENIA
     Dosage: UNK
     Dates: start: 20121222
  2. NPLATE [Suspect]
     Indication: IDIOPATHIC THROMBOCYTOPENIC PURPURA
  3. IMMUNOGLOBULIN I.V [Concomitant]
  4. CORTICOSTEROIDS [Concomitant]

REACTIONS (3)
  - Hospitalisation [Recovering/Resolving]
  - Drug dose omission [Recovered/Resolved]
  - Platelet count decreased [Recovered/Resolved]
